FAERS Safety Report 9201846 (Version 1)
Quarter: 2013Q2

REPORT INFORMATION
  Report Type: Report from Study
  Country: CA (occurrence: CA)
  Receive Date: 20130401
  Receipt Date: 20130401
  Transmission Date: 20140414
  Serious: Yes (Other)
  Sender: FDA-Public Use
  Company Number: CA-JNJFOC-20130313685

PATIENT
  Sex: Female
  Weight: 58.7 kg

DRUGS (6)
  1. REMICADE [Suspect]
     Indication: CROHN^S DISEASE
     Dosage: SECOND TIME
     Route: 042
     Dates: start: 201208
  2. REMICADE [Suspect]
     Indication: CROHN^S DISEASE
     Route: 042
     Dates: start: 2008
  3. PENTASA [Concomitant]
     Route: 065
  4. OMEPRAZOLE [Concomitant]
     Route: 065
  5. NASAL SPRAY NOS [Concomitant]
     Route: 065
  6. ELTROXIN [Concomitant]
     Route: 065

REACTIONS (6)
  - Foot fracture [Recovered/Resolved]
  - Adverse drug reaction [Unknown]
  - Dyspnoea [Unknown]
  - Throat tightness [Unknown]
  - Cough [Unknown]
  - Chest discomfort [Unknown]
